FAERS Safety Report 10472925 (Version 1)
Quarter: 2014Q3

REPORT INFORMATION
  Report Type: Spontaneous
  Country: US (occurrence: None)
  Receive Date: 20140923
  Receipt Date: 20140923
  Transmission Date: 20150326
  Serious: Yes (Other)
  Sender: FDA-Public Use
  Company Number: None

PATIENT
  Age: 9 Year

DRUGS (3)
  1. MAGNESIUM [Suspect]
     Active Substance: MAGNESIUM
  2. NEURONTIN [Suspect]
     Active Substance: GABAPENTIN
     Indication: DIABETIC NEUROPATHY
  3. PANCREASE MT [Concomitant]
     Active Substance: PANCRELIPASE

REACTIONS (2)
  - No therapeutic response [None]
  - Diarrhoea [None]

NARRATIVE: CASE EVENT DATE: 20140919
